FAERS Safety Report 20364318 (Version 1)
Quarter: 2022Q1

REPORT INFORMATION
  Report Type: Spontaneous
  Country: US (occurrence: None)
  Receive Date: 20220121
  Receipt Date: 20220121
  Transmission Date: 20220423
  Serious: Yes (Hospitalization)
  Sender: FDA-Public Use
  Company Number: None

PATIENT
  Age: 67 Year
  Sex: Male
  Weight: 88 kg

DRUGS (2)
  1. EMPAGLIFLOZIN [Suspect]
     Active Substance: EMPAGLIFLOZIN
     Indication: Necrosis
     Dosage: FREQUENCY : DAILY;?
     Route: 048
     Dates: start: 20170419
  2. EMPAGLIFLOZIN [Suspect]
     Active Substance: EMPAGLIFLOZIN
     Indication: Perineal infection

REACTIONS (3)
  - Rash [None]
  - Necrosis [None]
  - Infection [None]

NARRATIVE: CASE EVENT DATE: 20201217
